FAERS Safety Report 9981799 (Version 1)
Quarter: 2014Q1

REPORT INFORMATION
  Report Type: Spontaneous
  Country: US (occurrence: None)
  Receive Date: 20140306
  Receipt Date: 20140306
  Transmission Date: 20141002
  Serious: No
  Sender: FDA-Public Use
  Company Number: None

PATIENT
  Age: 92 Year
  Sex: Male
  Weight: 68.95 kg

DRUGS (1)
  1. TRELSTAR [Suspect]
     Dosage: 11.25 MG EVERY 12 WEEKS INTRAMUSCULAR
     Route: 030

REACTIONS (3)
  - Pain in extremity [None]
  - Local swelling [None]
  - Hypoacusis [None]
